FAERS Safety Report 9040830 (Version 1)
Quarter: 2013Q1

REPORT INFORMATION
  Report Type: Report from Study
  Country: US (occurrence: US)
  Receive Date: 20130129
  Receipt Date: 20130129
  Transmission Date: 20140127
  Serious: No
  Sender: FDA-Public Use
  Company Number: US-ABBOTT-12P-163-0899370-00

PATIENT
  Age: 77 Year
  Sex: Female

DRUGS (6)
  1. HUMIRA 40 MG/0.8 ML PEN [Suspect]
     Indication: RHEUMATOID ARTHRITIS
     Dates: start: 20120123
  2. ALEVE [Concomitant]
     Indication: PAIN
     Route: 048
  3. MULTIVITAMIN [Concomitant]
     Indication: VITAMIN SUPPLEMENTATION
     Route: 048
  4. VITAMIN D [Concomitant]
     Indication: VITAMIN SUPPLEMENTATION
     Route: 048
  5. OMEGA 3 [Concomitant]
     Indication: MEDICAL DIET
     Route: 048
  6. VITAMIN C [Concomitant]
     Indication: VITAMIN SUPPLEMENTATION

REACTIONS (2)
  - Headache [Recovered/Resolved]
  - Fatigue [Recovered/Resolved]
